FAERS Safety Report 20182838 (Version 1)
Quarter: 2021Q4

REPORT INFORMATION
  Report Type: Report from Study
  Country: US (occurrence: US)
  Receive Date: 20211214
  Receipt Date: 20211214
  Transmission Date: 20220303
  Serious: Yes (Hospitalization)
  Sender: FDA-Public Use
  Company Number: US-EXELIXIS-CABO-21047123

PATIENT
  Sex: Female
  Weight: 74 kg

DRUGS (17)
  1. CABOMETYX [Suspect]
     Active Substance: CABOZANTINIB S-MALATE
     Indication: Renal cell carcinoma
     Dosage: 60 MG, QD
     Route: 048
     Dates: start: 20211117
  2. CABOMETYX [Suspect]
     Active Substance: CABOZANTINIB S-MALATE
     Indication: Metastases to central nervous system
  3. FENTANYL [Concomitant]
     Active Substance: FENTANYL
  4. GABAPENTIN [Concomitant]
     Active Substance: GABAPENTIN
  5. LEVETIRACETAM [Concomitant]
     Active Substance: LEVETIRACETAM
  6. LORAZEPAM [Concomitant]
     Active Substance: LORAZEPAM
  7. MEGESTROL [Concomitant]
     Active Substance: MEGESTROL
  8. MEMANTINE [Concomitant]
     Active Substance: MEMANTINE
  9. METOPROLOL [Concomitant]
     Active Substance: METOPROLOL
  10. ONDANSETRON [Concomitant]
     Active Substance: ONDANSETRON
  11. PANTOPRAZOLE [Concomitant]
     Active Substance: PANTOPRAZOLE
  12. POLYETHYLENE GLYCOL [Concomitant]
     Active Substance: POLYETHYLENE GLYCOL
  13. POTASSIUM [Concomitant]
     Active Substance: POTASSIUM
  14. PREDNISONE [Concomitant]
     Active Substance: PREDNISONE
  15. SERTRALINE [Concomitant]
     Active Substance: SERTRALINE HYDROCHLORIDE
  16. XARELTO [Concomitant]
     Active Substance: RIVAROXABAN
  17. MORPHINE [Concomitant]
     Active Substance: MORPHINE

REACTIONS (5)
  - Chest discomfort [Unknown]
  - Back pain [Unknown]
  - Thrombosis [Unknown]
  - Anxiety [Unknown]
  - Full blood count decreased [Unknown]
